FAERS Safety Report 19771102 (Version 1)
Quarter: 2021Q3

REPORT INFORMATION
  Report Type: Spontaneous
  Country: US (occurrence: US)
  Receive Date: 20210830
  Receipt Date: 20210830
  Transmission Date: 20211014
  Serious: Yes (Death)
  Sender: FDA-Public Use
  Company Number: None

PATIENT
  Sex: Female

DRUGS (2)
  1. KEYTRUDA [Suspect]
     Active Substance: PEMBROLIZUMAB
     Indication: BONE CANCER
     Dosage: ?          OTHER FREQUENCY:ON DAY 1 EVERY 3 W;?
     Route: 042
     Dates: start: 20210713
  2. KEYTRUDA [Suspect]
     Active Substance: PEMBROLIZUMAB
     Indication: BREAST CANCER
     Dosage: ?          OTHER FREQUENCY:ON DAY 1 EVERY 3 W;?
     Route: 042
     Dates: start: 20210713

REACTIONS (1)
  - Death [None]
